FAERS Safety Report 15975129 (Version 3)
Quarter: 2019Q2

REPORT INFORMATION
  Report Type: Spontaneous
  Country: US (occurrence: US)
  Receive Date: 20190218
  Receipt Date: 20190429
  Transmission Date: 20190711
  Serious: No
  Sender: FDA-Public Use
  Company Number: US-PFIZER INC-2019060818

PATIENT
  Age: 50 Year
  Sex: Female

DRUGS (3)
  1. DETUSS (CARAMIPHEN EDISILATE\PHENYLPROPANOLAMINE HYDROCHLORIDE) [Suspect]
     Active Substance: CARAMIPHEN EDISYLATE\PHENYLPROPANOLAMINE HYDROCHLORIDE
     Dosage: UNK
  2. AMOXICILLIN. [Suspect]
     Active Substance: AMOXICILLIN
     Dosage: UNK
  3. MORPHINE SULFATE. [Suspect]
     Active Substance: MORPHINE SULFATE
     Dosage: UNK

REACTIONS (1)
  - Drug hypersensitivity [Unknown]
